FAERS Safety Report 8804582 (Version 1)
Quarter: 2012Q4

REPORT INFORMATION
  Report Type: 
  Country: US (occurrence: US)
  Receive Date: 20120924
  Receipt Date: 20120924
  Transmission Date: 20130627
  Serious: Yes (Other)
  Sender: FDA-Public Use
  Company Number: US-PFIZER INC-2012233510

PATIENT
  Age: 36 Year
  Sex: Female
  Weight: 58.96 kg

DRUGS (2)
  1. CHANTIX [Suspect]
     Indication: SMOKING CESSATION THERAPY
     Dosage: 0.5 mg, daily
     Dates: start: 20120802, end: 2012
  2. CHANTIX [Suspect]
     Dosage: UNK
     Dates: start: 2012

REACTIONS (4)
  - Hallucination [Unknown]
  - Abnormal dreams [Unknown]
  - Nausea [Unknown]
  - Dizziness [Unknown]
